FAERS Safety Report 13032923 (Version 1)
Quarter: 2016Q4

REPORT INFORMATION
  Report Type: Spontaneous
  Country: US (occurrence: US)
  Receive Date: 20161215
  Receipt Date: 20161215
  Transmission Date: 20170207
  Serious: No
  Sender: FDA-Public Use
  Company Number: US-BION-20160084

PATIENT
  Age: 29 Year
  Sex: Female

DRUGS (7)
  1. VITAMIN D [Suspect]
     Active Substance: CHOLECALCIFEROL
     Dosage: 1 DSF QID
  2. LEFLUNOMIDE (ARAVA) [Suspect]
     Active Substance: LEFLUNOMIDE
     Dosage: 1 DSF QID
  3. CIMZIA [Suspect]
     Active Substance: CERTOLIZUMAB PEGOL
     Indication: RHEUMATOID ARTHRITIS
     Dosage: 2 DSF EVERY 14 DAYS
  4. XANAX [Concomitant]
     Active Substance: ALPRAZOLAM
     Dosage: 1 DSF TAKEN TWICE DAILY
  5. ZOLOFT [Concomitant]
     Active Substance: SERTRALINE HYDROCHLORIDE
     Dosage: 1 DSF QID
  6. LUNESTA [Suspect]
     Active Substance: ESZOPICLONE
     Dosage: 1 DSF TAKEN AT NIGHT AS NEEDED
  7. ADVIL/MORTRIN [Concomitant]
     Indication: ANALGESIC THERAPY
     Dosage: 1 DSF EVERY 6 HRS

REACTIONS (4)
  - Asthenia [Not Recovered/Not Resolved]
  - Rheumatoid arthritis [Unknown]
  - Poor quality sleep [Not Recovered/Not Resolved]
  - Drug ineffective [Unknown]
